FAERS Safety Report 8850289 (Version 2)
Quarter: 2012Q4

REPORT INFORMATION
  Report Type: 
  Country: US (occurrence: US)
  Receive Date: 20121019
  Receipt Date: 20121121
  Transmission Date: 20130627
  Serious: Yes (Other)
  Sender: FDA-Public Use
  Company Number: US-PFIZER INC-2012256335

PATIENT
  Sex: Female

DRUGS (1)
  1. DETROL [Suspect]
     Dosage: UNK
     Dates: start: 20080304

REACTIONS (3)
  - Road traffic accident [Unknown]
  - Joint injury [Unknown]
  - Impaired work ability [Unknown]
